FAERS Safety Report 4615213-3 (Version None)
Quarter: 2005Q1

REPORT INFORMATION
  Report Type: 
  Country: None (occurrence: None)
  Receive Date: 20050317
  Receipt Date: 20041221
  Transmission Date: 20050727
  Serious: Yes (Hospitalization)
  Sender: FDA-Public Use
  Company Number: 2004198047US

PATIENT
  Age: 70 Year
  Sex: Female
  Weight: 53.51 kg

DRUGS (12)
  1. CELECOXIB (CELECOXIB) [Suspect]
     Indication: ILL-DEFINED DISORDER
     Dosage: (200 MG)
  2. IRINOTECAN HCL [Suspect]
     Indication: COLON CANCER
     Dosage: 288 MG (1 IN 2  WK)
     Dates: start: 20031110, end: 20040104
  3. FLUOROURACIL [Suspect]
     Indication: COLON CANCER
     Dosage: 3840 MG, INTRAVENOUS
     Route: 042
     Dates: start: 20031110, end: 20040101
  4. LEUCOVORIN CALCIUM [Suspect]
     Indication: COLON CANCER
     Dosage: 640 MG (1 IN 2 WK), INTRAVENOUS
     Route: 042
     Dates: start: 20031110, end: 20040104
  5. CHOLESTYRAMINE [Concomitant]
  6. THIETHYLPERAZINE MALEATE (THIETHYLPERAZINE MALEATE) [Concomitant]
  7. PROMETHAZINE HYDROCHLORIDE (PROMETAHZINE HYDROCHLORIDE) [Concomitant]
  8. ATORVASTATIN CALCIUM [Concomitant]
  9. LIBRAX [Concomitant]
  10. ATENOLOL [Concomitant]
  11. WARFARIN SODIUM [Concomitant]
  12. SUCRALFATE [Concomitant]

REACTIONS (19)
  - ASTHENIA [None]
  - COAGULOPATHY [None]
  - DEHYDRATION [None]
  - DIARRHOEA [None]
  - DYSPEPSIA [None]
  - EPISTAXIS [None]
  - HAEMATOCHEZIA [None]
  - HAEMOGLOBIN DECREASED [None]
  - INTERNATIONAL NORMALISED RATIO INCREASED [None]
  - LEUKOPENIA [None]
  - MALNUTRITION [None]
  - MOUTH HAEMORRHAGE [None]
  - MUCOSAL INFLAMMATION [None]
  - MUCOSAL ULCERATION [None]
  - NAUSEA [None]
  - ORAL MUCOSAL DISORDER [None]
  - PLATELET COUNT INCREASED [None]
  - POST PROCEDURAL DIARRHOEA [None]
  - WHITE BLOOD CELL COUNT INCREASED [None]
